FAERS Safety Report 6705879-6 (Version None)
Quarter: 2010Q2

REPORT INFORMATION
  Report Type: 
  Country: None (occurrence: None)
  Receive Date: 20100503
  Receipt Date: 20100122
  Transmission Date: 20101027
  Serious: No
  Sender: FDA-Public Use
  Company Number: US-ASTRAZENECA-2010SE03059

PATIENT
  Age: 51 Year
  Sex: Female
  Weight: 90.7 kg

DRUGS (5)
  1. NEXIUM [Suspect]
     Route: 048
     Dates: start: 20091101
  2. BLOOD PRESSURE MEDICATION [Concomitant]
  3. ANXIETY MEDICATION [Concomitant]
  4. DEPRESSION MEDICATION [Concomitant]
  5. METOPROLOL [Concomitant]

REACTIONS (3)
  - DRUG DOSE OMISSION [None]
  - RETCHING [None]
  - VOMITING [None]
